FAERS Safety Report 21205966 (Version 1)
Quarter: 2022Q3

REPORT INFORMATION
  Report Type: Report from Study
  Country: KR (occurrence: KR)
  Receive Date: 20220812
  Receipt Date: 20220812
  Transmission Date: 20221027
  Serious: Yes (Other)
  Sender: FDA-Public Use
  Company Number: KR-OTSUKA-2022_039904

PATIENT
  Age: 42 Year
  Sex: Female

DRUGS (9)
  1. PONATINIB [Suspect]
     Active Substance: PONATINIB
     Indication: Philadelphia positive acute lymphocytic leukaemia
     Dosage: 45 MILLIGRAM, QD
     Route: 048
     Dates: start: 20210903, end: 20210928
  2. PONATINIB [Suspect]
     Active Substance: PONATINIB
     Dosage: 30 MILLIGRAM, QD
     Route: 048
     Dates: start: 20210929
  3. SUPRAX [Concomitant]
     Active Substance: CEFIXIME
     Indication: Calculus urinary
     Dosage: 100 MILLIGRAM, BID
     Route: 048
     Dates: start: 20210819, end: 20210825
  4. VINCRISTINE [Concomitant]
     Active Substance: VINCRISTINE
     Indication: Acute lymphocytic leukaemia
     Dosage: 2 MILLIGRAM, QD
     Route: 042
     Dates: start: 20210904, end: 20210904
  5. ALLOPURINOL [Concomitant]
     Active Substance: ALLOPURINOL
     Indication: Calculus urinary
     Dosage: 100 MILLIGRAM, TID
     Route: 048
     Dates: start: 20210903, end: 20211015
  6. PREDNISOLONE [Concomitant]
     Active Substance: PREDNISOLONE
     Indication: Prophylaxis against graft versus host disease
     Dosage: 5 MILLIGRAM, QD
     Route: 048
     Dates: start: 20170427
  7. CELLCEPT [Concomitant]
     Active Substance: MYCOPHENOLATE MOFETIL
     Indication: Graft versus host disease in eye
     Dosage: 250 MILLIGRAM, BID
     Route: 048
     Dates: start: 20210122
  8. CELLCEPT [Concomitant]
     Active Substance: MYCOPHENOLATE MOFETIL
     Indication: Graft versus host disease in lung
  9. CELLCEPT [Concomitant]
     Active Substance: MYCOPHENOLATE MOFETIL
     Indication: Graft versus host disease in skin

REACTIONS (3)
  - Pneumonia fungal [Recovered/Resolved]
  - Abdominal pain upper [Recovered/Resolved]
  - Back pain [Recovered/Resolved]

NARRATIVE: CASE EVENT DATE: 20210905
